FAERS Safety Report 4787805-2 (Version None)
Quarter: 2005Q4

REPORT INFORMATION
  Report Type: 
  Country: None (occurrence: None)
  Receive Date: 20051004
  Receipt Date: 20050922
  Transmission Date: 20060501
  Serious: Yes (Hospitalization)
  Sender: FDA-Public Use
  Company Number: US-MERCK-0509USA03327

PATIENT
  Age: 22 Year
  Sex: Male
  Weight: 98 kg

DRUGS (4)
  1. VIOXX [Suspect]
     Indication: LIMB INJURY
     Route: 048
     Dates: start: 20031001, end: 20031201
  2. VIOXX [Suspect]
     Route: 048
     Dates: start: 20040801, end: 20040901
  3. VIOXX [Suspect]
     Indication: JOINT INJURY
     Route: 048
     Dates: start: 20031001, end: 20031201
  4. VIOXX [Suspect]
     Route: 048
     Dates: start: 20040801, end: 20040901

REACTIONS (3)
  - ADVERSE EVENT [None]
  - HEART RATE INCREASED [None]
  - THROMBOSIS [None]
